FAERS Safety Report 10193726 (Version 1)
Quarter: 2014Q2

REPORT INFORMATION
  Report Type: Spontaneous
  Country: US (occurrence: US)
  Receive Date: 20140524
  Receipt Date: 20140524
  Transmission Date: 20141212
  Serious: No
  Sender: FDA-Public Use
  Company Number: US-SA-2014SA010981

PATIENT
  Sex: Male

DRUGS (2)
  1. LANTUS [Suspect]
     Route: 051
  2. NOVOLOG [Suspect]
     Route: 065

REACTIONS (3)
  - Weight decreased [Unknown]
  - Hyperglycaemia [Unknown]
  - Wrong drug administered [Unknown]
